FAERS Safety Report 8609968 (Version 4)
Quarter: 2013Q3

REPORT INFORMATION
  Report Type: Spontaneous
  Country: GB (occurrence: GB)
  Receive Date: 20120612
  Receipt Date: 20130822
  Transmission Date: 20140515
  Serious: Yes (Other)
  Sender: FDA-Public Use
  Company Number: PHFR2012GB003333

PATIENT
  Age: 39 Year
  Sex: Female

DRUGS (1)
  1. ZOMETA [Suspect]
     Indication: HYPERCALCAEMIA
     Dosage: UNK UKN, UNK

REACTIONS (2)
  - Plasma cell myeloma [Recovered/Resolved]
  - Hypercalcaemia [Recovered/Resolved]
